FAERS Safety Report 8008656-1 (Version None)
Quarter: 2011Q4

REPORT INFORMATION
  Report Type: 
  Country: None (occurrence: None)
  Receive Date: 20111227
  Receipt Date: 20111223
  Transmission Date: 20120403
  Serious: Yes (Hospitalization)
  Sender: FDA-Public Use
  Company Number: US-CEPHALON-2011006339

PATIENT
  Sex: Female
  Weight: 44 kg

DRUGS (11)
  1. CELEXA [Concomitant]
     Dates: start: 20090101
  2. DEXAMETHASONE [Suspect]
     Dates: start: 20111107
  3. MORINGA [Concomitant]
     Dates: start: 20090101
  4. LENALIDOMIDE [Suspect]
     Dates: start: 20111107, end: 20111206
  5. GABAPENTIN [Concomitant]
     Dates: start: 20090101
  6. OXYCODONE HCL [Concomitant]
     Dates: start: 19990101
  7. MULTIVIAMINS WITH MINERALS [Concomitant]
     Dates: start: 19990101
  8. ALBUTEROL [Concomitant]
     Dates: start: 20060101
  9. ALPRAZOLAM [Concomitant]
     Dates: start: 20080101
  10. TREANDA [Suspect]
     Indication: MULTIPLE MYELOMA
     Route: 042
     Dates: start: 20111107
  11. VITAMIN E [Concomitant]
     Dates: start: 19990101

REACTIONS (1)
  - ILEUS [None]
